FAERS Safety Report 10753958 (Version 5)
Quarter: 2016Q1

REPORT INFORMATION
  Report Type: Report from Study
  Country: CA (occurrence: CA)
  Receive Date: 20150202
  Receipt Date: 20160114
  Transmission Date: 20160525
  Serious: Yes (Other)
  Sender: FDA-Public Use
  Company Number: CA-ROCHE-1455520

PATIENT
  Age: 44 Year
  Sex: Female

DRUGS (12)
  1. PLAQUENIL [Concomitant]
     Active Substance: HYDROXYCHLOROQUINE SULFATE
  2. PREDNISONE. [Concomitant]
     Active Substance: PREDNISONE
     Dosage: DAILY (DOSE INCREASED)
     Route: 065
  3. TYLENOL #1 (CANADA) [Concomitant]
     Active Substance: ACETAMINOPHEN\CAFFEINE\CODEINE PHOSPHATE
     Dosage: FREQUENCY TIME : AS REQUIRED.
     Route: 065
  4. IBUPROFEN. [Concomitant]
     Active Substance: IBUPROFEN
     Dosage: FREQUENCY TIME: AS REQUIRED.
     Route: 065
  5. PREDNISONE. [Concomitant]
     Active Substance: PREDNISONE
     Dosage: DOSE LOWERED
     Route: 048
     Dates: start: 201404
  6. DESOGESTREL AND ETHINYL ESTRADIOL [Concomitant]
     Active Substance: DESOGESTREL\ETHINYL ESTRADIOL
  7. ORENCIA [Concomitant]
     Active Substance: ABATACEPT
  8. CETIRIZINE [Concomitant]
     Active Substance: CETIRIZINE HYDROCHLORIDE
     Route: 065
  9. ACTEMRA [Suspect]
     Active Substance: TOCILIZUMAB
     Indication: RHEUMATOID ARTHRITIS
     Route: 042
     Dates: start: 20140729
  10. PANTOLOC [Concomitant]
     Active Substance: PANTOPRAZOLE SODIUM
  11. LEFLUNOMIDE. [Concomitant]
     Active Substance: LEFLUNOMIDE
  12. ACTEMRA [Suspect]
     Active Substance: TOCILIZUMAB
     Route: 042
     Dates: start: 20141216, end: 20150309

REACTIONS (20)
  - Nasopharyngitis [Not Recovered/Not Resolved]
  - Swelling [Recovering/Resolving]
  - Pyrexia [Not Recovered/Not Resolved]
  - Folliculitis [Unknown]
  - Gastrointestinal disorder [Unknown]
  - Arthralgia [Recovering/Resolving]
  - Weight increased [Unknown]
  - Joint swelling [Not Recovered/Not Resolved]
  - Irritable bowel syndrome [Unknown]
  - Fatigue [Unknown]
  - Hypersensitivity [Not Recovered/Not Resolved]
  - Impaired healing [Unknown]
  - Drug ineffective [Unknown]
  - Stomatitis [Recovered/Resolved]
  - Sinusitis [Unknown]
  - Muscle injury [Unknown]
  - Infection [Unknown]
  - Contusion [Not Recovered/Not Resolved]
  - Blister [Unknown]
  - Fatigue [Not Recovered/Not Resolved]

NARRATIVE: CASE EVENT DATE: 201409
